FAERS Safety Report 4899207-9 (Version None)
Quarter: 2006Q1

REPORT INFORMATION
  Report Type: 
  Country: None (occurrence: None)
  Receive Date: 20060106
  Receipt Date: 20050715
  Transmission Date: 20060701
  Serious: Yes (Other)
  Sender: FDA-Public Use
  Company Number: HQWYE290120JUL05

PATIENT
  Sex: Female

DRUGS (2)
  1. PRIMATENE MIST [Suspect]
     Indication: ASTHMA
     Dosage: INHALATION
     Route: 055
  2. PRIMATENE MIST [Suspect]

REACTIONS (1)
  - FEELING ABNORMAL [None]
